FAERS Safety Report 9495781 (Version 2)
Quarter: 2013Q3

REPORT INFORMATION
  Report Type: Spontaneous
  Country: DK (occurrence: DK)
  Receive Date: 20130903
  Receipt Date: 20130918
  Transmission Date: 20140515
  Serious: Yes (Hospitalization)
  Sender: FDA-Public Use
  Company Number: DK-009507513-1309DNK000985

PATIENT
  Age: 57 Year
  Sex: Female

DRUGS (2)
  1. ALENDRONATE SODIUM [Suspect]
     Route: 048
  2. ALISKIREN [Concomitant]
     Indication: CARDIOVASCULAR DISORDER
     Route: 048
     Dates: start: 20081216, end: 201004

REACTIONS (1)
  - Azotaemia [Recovering/Resolving]
